FAERS Safety Report 6862015-3 (Version None)
Quarter: 2010Q3

REPORT INFORMATION
  Report Type: 
  Country: None (occurrence: None)
  Receive Date: 20100721
  Receipt Date: 20100716
  Transmission Date: 20110219
  Serious: Yes (Life-Threatening)
  Sender: FDA-Public Use
  Company Number: PHHY2010TW46856

PATIENT
  Age: 61 Year
  Sex: Female

DRUGS (1)
  1. ACLASTA [Suspect]
     Indication: OSTEOPOROSIS POSTMENOPAUSAL
     Dosage: 5 MG ONCE PER YEAR
     Route: 042
     Dates: start: 20091127

REACTIONS (3)
  - FEELING ABNORMAL [None]
  - MUSCLE SPASMS [None]
  - PYREXIA [None]
